FAERS Safety Report 8092936-8 (Version None)
Quarter: 2012Q1

REPORT INFORMATION
  Report Type: 
  Country: None (occurrence: None)
  Receive Date: 20120131
  Receipt Date: 20120113
  Transmission Date: 20120608
  Serious: Yes (Other)
  Sender: FDA-Public Use
  Company Number: JP-US-EMD SERONO, INC.-7080566

PATIENT
  Sex: Female
  Weight: 70 kg

DRUGS (4)
  1. CHORIONIC GONADOTROPIN [Concomitant]
     Indication: ANOVULATORY CYCLE
     Route: 065
     Dates: start: 20110411, end: 20110411
  2. GONAL-F RFF PEN [Suspect]
     Indication: ANOVULATORY CYCLE
     Route: 058
     Dates: start: 20110328, end: 20110402
  3. GONAL-F RFF PEN [Suspect]
     Route: 058
     Dates: start: 20110403, end: 20110407
  4. GONAL-F RFF PEN [Suspect]
     Route: 058
     Dates: start: 20110409, end: 20110410

REACTIONS (1)
  - ABORTION [None]
